FAERS Safety Report 26111139 (Version 2)
Quarter: 2025Q4

REPORT INFORMATION
  Report Type: Spontaneous
  Country: EU (occurrence: EU)
  Receive Date: 20251202
  Receipt Date: 20251218
  Transmission Date: 20260117
  Serious: Yes (Other)
  Sender: BAUSCH AND LOMB
  Company Number: EU-BAUSCH-BH-2025-021108

PATIENT
  Age: 43 Year
  Sex: Male

DRUGS (15)
  1. DEXAMETHASONE [Suspect]
     Active Substance: DEXAMETHASONE
     Indication: Prophylaxis of nausea and vomiting
     Dosage: UNK, UNKNOWN
     Route: 065
  2. NETUPITANT [Suspect]
     Active Substance: NETUPITANT
     Indication: Prophylaxis of nausea and vomiting
     Dosage: UNK, UNKNOWN
     Route: 065
  3. PALONOSETRON [Suspect]
     Active Substance: PALONOSETRON
     Indication: Prophylaxis of nausea and vomiting
     Dosage: UNK, UNKNOWN
     Route: 065
  4. DENOSUMAB [Concomitant]
     Active Substance: DENOSUMAB
     Indication: Metastases to bone
     Dosage: UNK, UNKNOWN
  5. ZOLBETUXIMAB [Concomitant]
     Active Substance: ZOLBETUXIMAB
     Indication: Gastric cancer
     Dosage: UNK, UNKNOWN
  6. ZOLBETUXIMAB [Concomitant]
     Active Substance: ZOLBETUXIMAB
     Indication: Metastases to lymph nodes
  7. ZOLBETUXIMAB [Concomitant]
     Active Substance: ZOLBETUXIMAB
     Indication: Metastases to lung
  8. ZOLBETUXIMAB [Concomitant]
     Active Substance: ZOLBETUXIMAB
     Indication: Metastases to bone
  9. ZOLBETUXIMAB [Concomitant]
     Active Substance: ZOLBETUXIMAB
     Indication: Metastases to peritoneum
  10. FLUOROURACIL\LEUCOVORIN CALCIUM\OXALIPLATIN [Concomitant]
     Active Substance: FLUOROURACIL\LEUCOVORIN CALCIUM\OXALIPLATIN
     Indication: Gastric cancer
     Dosage: UNK, UNKNOWN
  11. FLUOROURACIL\LEUCOVORIN CALCIUM\OXALIPLATIN [Concomitant]
     Active Substance: FLUOROURACIL\LEUCOVORIN CALCIUM\OXALIPLATIN
     Indication: Metastases to lymph nodes
  12. FLUOROURACIL\LEUCOVORIN CALCIUM\OXALIPLATIN [Concomitant]
     Active Substance: FLUOROURACIL\LEUCOVORIN CALCIUM\OXALIPLATIN
     Indication: Metastases to lung
  13. FLUOROURACIL\LEUCOVORIN CALCIUM\OXALIPLATIN [Concomitant]
     Active Substance: FLUOROURACIL\LEUCOVORIN CALCIUM\OXALIPLATIN
     Indication: Metastases to bone
  14. FLUOROURACIL\LEUCOVORIN CALCIUM\OXALIPLATIN [Concomitant]
     Active Substance: FLUOROURACIL\LEUCOVORIN CALCIUM\OXALIPLATIN
     Indication: Metastases to peritoneum
  15. UNSPECIFIED INGREDIENT [Concomitant]
     Active Substance: UNSPECIFIED INGREDIENT
     Indication: Jugular vein thrombosis

REACTIONS (1)
  - Therapy non-responder [Unknown]
